FAERS Safety Report 7902010-6 (Version None)
Quarter: 2011Q4

REPORT INFORMATION
  Report Type: 
  Country: None (occurrence: None)
  Receive Date: 20111108
  Receipt Date: 20111102
  Transmission Date: 20120403
  Serious: Yes (Death)
  Sender: FDA-Public Use
  Company Number: US-GLAXOSMITHKLINE-A0947714A

PATIENT
  Age: 52 Year
  Sex: Female

DRUGS (1)
  1. TYKERB [Suspect]
     Indication: BREAST CANCER FEMALE
     Dosage: 1000MG PER DAY
     Route: 048
     Dates: start: 20110606

REACTIONS (2)
  - METASTASES TO LIVER [None]
  - BREAST CANCER METASTATIC [None]
